FAERS Safety Report 6711090-5 (Version None)
Quarter: 2010Q2

REPORT INFORMATION
  Report Type: 
  Country: None (occurrence: None)
  Receive Date: 20100505
  Receipt Date: 20090729
  Transmission Date: 20101027
  Serious: No
  Sender: FDA-Public Use
  Company Number: US-KINGPHARMUSA00001-K200900910

PATIENT
  Sex: Female
  Weight: 49.887 kg

DRUGS (5)
  1. AVINZA [Suspect]
     Indication: NECK PAIN
     Dosage: 30 MG, QD
     Route: 048
     Dates: start: 20060101, end: 20080101
  2. AVINZA [Suspect]
     Indication: MUSCULOSKELETAL PAIN
     Dosage: 60 MG, QD
     Route: 048
     Dates: start: 20080101
  3. AVINZA [Suspect]
     Indication: BACK PAIN
  4. DULOXETINE HYDROCHLORIDE [Concomitant]
     Indication: DEPRESSION
     Dosage: UNK
  5. TIZANIDINE HCL [Concomitant]
     Indication: MUSCLE SPASMS
     Dosage: UNK

REACTIONS (3)
  - DERMATITIS [None]
  - RASH [None]
  - SCAR [None]
